FAERS Safety Report 6039074-3 (Version None)
Quarter: 2009Q1

REPORT INFORMATION
  Report Type: 
  Country: None (occurrence: None)
  Receive Date: 20090115
  Receipt Date: 20090108
  Transmission Date: 20090719
  Serious: Yes (Hospitalization, Other)
  Sender: FDA-Public Use
  Company Number: DE-PFIZER INC-2009153224

PATIENT

DRUGS (3)
  1. GABAPENTIN [Suspect]
     Dosage: UNK
     Route: 048
     Dates: start: 20070501
  2. TRAMADOL HCL [Interacting]
     Indication: PAIN
     Dosage: UNK
     Route: 048
     Dates: start: 20070501
  3. ALCOHOL [Interacting]
     Dosage: UNK
     Route: 048

REACTIONS (3)
  - AGGRESSION [None]
  - CSF PROTEIN [None]
  - ELECTROENCEPHALOGRAM ABNORMAL [None]
